FAERS Safety Report 5881521-1 (Version None)
Quarter: 2008Q3

REPORT INFORMATION
  Report Type: 
  Country: None (occurrence: None)
  Receive Date: 20080911
  Receipt Date: 20080828
  Transmission Date: 20090109
  Serious: Yes (Hospitalization)
  Sender: FDA-Public Use
  Company Number: 238251J08USA

PATIENT
  Age: 53 Year
  Sex: Female
  Weight: 90.7194 kg

DRUGS (6)
  1. REBIF [Suspect]
     Indication: MULTIPLE SCLEROSIS
     Dosage: 44 MCG, 3 IN 1 WEEKS, SUBCUTANEOUS
     Route: 058
     Dates: start: 20080325, end: 20080801
  2. ARICEPT [Concomitant]
  3. HYDROCHLOROTHIAZIDE [Concomitant]
  4. VALTREX [Concomitant]
  5. NEURONTIN [Concomitant]
  6. KLONOPIN [Concomitant]

REACTIONS (4)
  - CHEST PAIN [None]
  - CHILLS [None]
  - FATIGUE [None]
  - HAEMATEMESIS [None]
